FAERS Safety Report 7159230-0 (Version None)
Quarter: 2010Q4

REPORT INFORMATION
  Report Type: 
  Country: None (occurrence: None)
  Receive Date: 20101214
  Receipt Date: 20100810
  Transmission Date: 20110411
  Serious: No
  Sender: FDA-Public Use
  Company Number: US-ASTRAZENECA-2010SE37454

PATIENT
  Age: 60 Year
  Sex: Male
  Weight: 86.2 kg

DRUGS (10)
  1. CRESTOR [Suspect]
     Indication: HYPOCHOLESTEROLAEMIA
     Route: 048
     Dates: start: 20100101
  2. CRESTOR [Suspect]
     Route: 048
     Dates: start: 20100301
  3. SYMBICORT [Concomitant]
  4. VENTOLIN [Concomitant]
  5. FINASTERIDE [Concomitant]
     Indication: BENIGN PROSTATIC HYPERPLASIA
  6. UROXATRAL [Concomitant]
  7. CO-Q10 [Concomitant]
  8. FISH OIL [Concomitant]
  9. AMOXICILLIN [Concomitant]
  10. VITAMIN D [Concomitant]

REACTIONS (3)
  - ARTHRALGIA [None]
  - BLOOD CHOLESTEROL ABNORMAL [None]
  - DRUG INEFFECTIVE [None]
